FAERS Safety Report 10753643 (Version 3)
Quarter: 2015Q2

REPORT INFORMATION
  Report Type: Report from Study
  Country: IT (occurrence: IT)
  Receive Date: 20150201
  Receipt Date: 20150416
  Transmission Date: 20150821
  Serious: Yes (Death, Life-Threatening, Hospitalization, Disabling)
  Sender: FDA-Public Use
  Company Number: PHHO2014IT011545

PATIENT
  Age: 46 Year
  Sex: Female
  Weight: 57 kg

DRUGS (8)
  1. DIAMICRON [Concomitant]
     Active Substance: GLICLAZIDE
     Indication: DIABETES MELLITUS
     Dosage: 60 MG, QD
     Route: 065
     Dates: start: 20140512
  2. SOM230 [Suspect]
     Active Substance: PASIREOTIDE
     Indication: PITUITARY-DEPENDENT CUSHING^S SYNDROME
     Dosage: DOSE BLINDED
     Route: 030
     Dates: start: 20130603, end: 20130829
  3. SOM230 [Suspect]
     Active Substance: PASIREOTIDE
     Dosage: DOSE BLINDED
     Route: 030
     Dates: start: 20130924
  4. LANTUS [Concomitant]
     Active Substance: INSULIN GLARGINE
     Indication: DIABETES MELLITUS
     Dosage: 7 IU, QD
     Route: 065
     Dates: start: 201309
  5. NERIXIA [Concomitant]
     Indication: OSTEOPOROSIS
     Dosage: 25 MG, QD
     Route: 065
     Dates: start: 201206
  6. NATECAL D3 [Concomitant]
     Active Substance: CALCIUM CARBONATE\CHOLECALCIFEROL
     Indication: OSTEOPOROSIS
     Dosage: 600 MG
     Route: 065
     Dates: start: 201206
  7. JANUMET [Concomitant]
     Active Substance: METFORMIN HYDROCHLORIDE\SITAGLIPTIN PHOSPHATE
     Indication: DIABETES MELLITUS
     Dosage: 1 DF, QD (50/100 MG DAY)
     Route: 065
     Dates: start: 20140512
  8. DELTACORTENE [Concomitant]
     Active Substance: PREDNISONE
     Indication: ARTHRITIS
     Dosage: 25 MG, QD
     Route: 065
     Dates: start: 20120818

REACTIONS (4)
  - Dyspnoea [Recovered/Resolved with Sequelae]
  - Cardiopulmonary failure [Fatal]
  - Cardiac arrest [Fatal]
  - Arthritis [Recovered/Resolved with Sequelae]

NARRATIVE: CASE EVENT DATE: 20140807
